FAERS Safety Report 16644147 (Version 2)
Quarter: 2019Q3

REPORT INFORMATION
  Report Type: Spontaneous
  Country: CN (occurrence: CN)
  Receive Date: 20190729
  Receipt Date: 20190801
  Transmission Date: 20191004
  Serious: Yes (Other)
  Sender: FDA-Public Use
  Company Number: CN-UCBSA-2019030934

PATIENT
  Age: 3 Year
  Sex: Female
  Weight: 16 kg

DRUGS (3)
  1. OXCARBAZEPINE. [Concomitant]
     Active Substance: OXCARBAZEPINE
     Indication: PRODUCT USED FOR UNKNOWN INDICATION
     Dosage: 5 MILLILITER, 2X/DAY (BID)
     Dates: start: 201806
  2. VALPROIC ACID. [Concomitant]
     Active Substance: VALPROIC ACID
     Indication: PRODUCT USED FOR UNKNOWN INDICATION
     Dosage: 8.5 MILLILITER, 2X/DAY (BID)
     Dates: start: 201810
  3. VIMPAT [Suspect]
     Active Substance: LACOSAMIDE
     Indication: PRODUCT USED FOR UNKNOWN INDICATION
     Dosage: 25 MILLIGRAM, 2X/DAY (BID)
     Route: 048
     Dates: start: 20190615, end: 201907

REACTIONS (5)
  - Cyanosis [Unknown]
  - Loss of consciousness [Unknown]
  - Lip exfoliation [Unknown]
  - Lip dry [Unknown]
  - Seizure [Not Recovered/Not Resolved]

NARRATIVE: CASE EVENT DATE: 2019
